FAERS Safety Report 12896920 (Version 2)
Quarter: 2016Q4

REPORT INFORMATION
  Report Type: Spontaneous
  Country: US (occurrence: US)
  Receive Date: 20161031
  Receipt Date: 20161103
  Transmission Date: 20170207
  Serious: No
  Sender: FDA-Public Use
  Company Number: US-PFIZER INC-2016503974

PATIENT
  Age: 70 Year
  Sex: Female
  Weight: 83 kg

DRUGS (2)
  1. NORVASC [Suspect]
     Active Substance: AMLODIPINE BESYLATE
     Indication: HYPERTENSION
     Dosage: 5 MG, DAILY (ONCE)
     Dates: start: 201608
  2. ECOTRIN [Concomitant]
     Active Substance: ASPIRIN
     Dosage: 325 UG, 1X/DAY
     Dates: start: 2010

REACTIONS (2)
  - Peripheral swelling [Not Recovered/Not Resolved]
  - Joint swelling [Not Recovered/Not Resolved]
